FAERS Safety Report 17730665 (Version 1)
Quarter: 2020Q2

REPORT INFORMATION
  Report Type: Spontaneous
  Country: PT (occurrence: PT)
  Receive Date: 20200430
  Receipt Date: 20200430
  Transmission Date: 20200714
  Serious: Yes (Other)
  Sender: FDA-Public Use
  Company Number: PT-JNJFOC-20200436828

PATIENT
  Age: 22 Year
  Sex: Female
  Weight: 80 kg

DRUGS (1)
  1. RIVAROXABAN [Suspect]
     Active Substance: RIVAROXABAN
     Indication: PULMONARY EMBOLISM
     Dosage: 20 MG, 1X POR DIA AO P.A.
     Route: 048
     Dates: start: 20160609

REACTIONS (1)
  - Capillary disorder [Not Recovered/Not Resolved]

NARRATIVE: CASE EVENT DATE: 20160610
